FAERS Safety Report 18257009 (Version 2)
Quarter: 2021Q3

REPORT INFORMATION
  Report Type: Spontaneous
  Country: US (occurrence: US)
  Receive Date: 20200911
  Receipt Date: 20210817
  Transmission Date: 20211014
  Serious: Yes (Other)
  Sender: FDA-Public Use
  Company Number: US-SA-2020SA244385

PATIENT
  Age: 70 Year
  Sex: Male

DRUGS (1)
  1. ZANTAC [Suspect]
     Active Substance: RANITIDINE HYDROCHLORIDE
     Dosage: UNK
     Dates: start: 201401, end: 201701

REACTIONS (3)
  - Bladder cancer [Unknown]
  - Lung carcinoma cell type unspecified stage I [Unknown]
  - Mesothelioma [Unknown]

NARRATIVE: CASE EVENT DATE: 20180601
